FAERS Safety Report 8242911-5 (Version None)
Quarter: 2012Q1

REPORT INFORMATION
  Report Type: 
  Country: None (occurrence: None)
  Receive Date: 20120329
  Receipt Date: 20120329
  Transmission Date: 20120608
  Serious: Yes (Hospitalization)
  Sender: FDA-Public Use
  Company Number: None

PATIENT
  Age: 19 Year
  Sex: Female
  Weight: 59 kg

DRUGS (1)
  1. LAMICTAL [Suspect]
     Indication: BIPOLAR DISORDER
     Dosage: 25 MG
     Route: 048

REACTIONS (9)
  - WHITE BLOOD CELL COUNT DECREASED [None]
  - PYREXIA [None]
  - STEVENS-JOHNSON SYNDROME [None]
  - FALSE POSITIVE INVESTIGATION RESULT [None]
  - MONONUCLEOSIS HETEROPHILE TEST POSITIVE [None]
  - HEART RATE INCREASED [None]
  - SYSTEMIC INFLAMMATORY RESPONSE SYNDROME [None]
  - SEPSIS [None]
  - RASH GENERALISED [None]
